FAERS Safety Report 7903814-6 (Version None)
Quarter: 2011Q4

REPORT INFORMATION
  Report Type: 
  Country: None (occurrence: None)
  Receive Date: 20111109
  Receipt Date: 20111027
  Transmission Date: 20120403
  Serious: Yes (Hospitalization, Other)
  Sender: FDA-Public Use
  Company Number: PL-SANOFI-AVENTIS-2011SA060876

PATIENT
  Age: 71 Year
  Sex: Female

DRUGS (10)
  1. DIGOXIN [Interacting]
     Route: 065
  2. NAPROXEN [Interacting]
     Route: 065
  3. LITHIUM CARBONATE [Interacting]
     Route: 065
  4. CARBAMAZEPINE [Interacting]
     Route: 065
  5. BIPERIDEN HYDROCHLORIDE TAB [Concomitant]
     Indication: PARKINSON'S DISEASE
  6. NAPROXEN [Interacting]
     Route: 065
  7. FUROSEMIDE [Suspect]
     Route: 065
  8. DICLOFENAC SODIUM [Interacting]
     Route: 065
  9. LEVOMEPROMAZINE [Concomitant]
  10. DICLOFENAC SODIUM [Interacting]
     Dosage: AT NIGHT
     Route: 065

REACTIONS (16)
  - MEMORY IMPAIRMENT [None]
  - HYPOTONIA [None]
  - DRUG INTERACTION [None]
  - SOMNOLENCE [None]
  - DIZZINESS [None]
  - BRADYCARDIA [None]
  - MENTAL DISORDER [None]
  - CONTUSION [None]
  - HYPOTENSION [None]
  - COMA [None]
  - DRUG LEVEL INCREASED [None]
  - HYPOREFLEXIA [None]
  - APHAGIA [None]
  - DEHYDRATION [None]
  - ASTHENIA [None]
  - TREMOR [None]
